FAERS Safety Report 21085938 (Version 1)
Quarter: 2022Q3

REPORT INFORMATION
  Report Type: Spontaneous
  Country: US (occurrence: US)
  Receive Date: 20220715
  Receipt Date: 20220715
  Transmission Date: 20221026
  Serious: Yes (Other)
  Sender: FDA-Public Use
  Company Number: US-SUN PHARMACEUTICAL INDUSTRIES LTD-2022R1-344327

PATIENT
  Age: 3 Decade
  Sex: Female

DRUGS (10)
  1. PREDNISONE [Suspect]
     Active Substance: PREDNISONE
     Indication: Telangiectasia
     Dosage: UNK
     Route: 065
  2. PREDNISONE [Suspect]
     Active Substance: PREDNISONE
     Indication: Atrophy
  3. CLOBETASOL [Suspect]
     Active Substance: CLOBETASOL
     Indication: Telangiectasia
     Dosage: UNK
     Route: 061
  4. CLOBETASOL [Suspect]
     Active Substance: CLOBETASOL
     Indication: Atrophy
  5. HYDROXYCHLOROQUINE [Suspect]
     Active Substance: HYDROXYCHLOROQUINE
     Indication: Telangiectasia
     Dosage: UNK
     Route: 065
  6. HYDROXYCHLOROQUINE [Suspect]
     Active Substance: HYDROXYCHLOROQUINE
     Indication: Atrophy
  7. PENTOXIFYLLINE [Suspect]
     Active Substance: PENTOXIFYLLINE
     Indication: Telangiectasia
     Dosage: UNK
     Route: 065
  8. PENTOXIFYLLINE [Suspect]
     Active Substance: PENTOXIFYLLINE
     Indication: Atrophy
  9. DAPSONE [Suspect]
     Active Substance: DAPSONE
     Indication: Telangiectasia
     Dosage: UNK
     Route: 065
  10. DAPSONE [Suspect]
     Active Substance: DAPSONE
     Indication: Atrophy

REACTIONS (1)
  - Therapy partial responder [Unknown]
